FAERS Safety Report 14719043 (Version 2)
Quarter: 2018Q2

REPORT INFORMATION
  Report Type: Spontaneous
  Country: US (occurrence: US)
  Receive Date: 20180405
  Receipt Date: 20180524
  Transmission Date: 20180711
  Serious: No
  Sender: FDA-Public Use
  Company Number: US-UNITED THERAPEUTICS-UNT-2018-004238

PATIENT
  Age: 55 Year
  Sex: Female
  Weight: 78.5 kg

DRUGS (2)
  1. REMODULIN [Suspect]
     Active Substance: TREPROSTINIL
     Dosage: 0.024 ?G/KG, CONTINUING
     Route: 041
  2. REMODULIN [Suspect]
     Active Substance: TREPROSTINIL
     Indication: PULMONARY ARTERIAL HYPERTENSION
     Dosage: 0.017 ?G/KG, CONTINUING
     Route: 041
     Dates: start: 20180322

REACTIONS (5)
  - Diarrhoea [Unknown]
  - Headache [Unknown]
  - Anxiety [Unknown]
  - Dermatitis contact [Unknown]
  - Hypotension [Unknown]

NARRATIVE: CASE EVENT DATE: 201803
